FAERS Safety Report 5845460-4 (Version None)
Quarter: 2008Q3

REPORT INFORMATION
  Report Type: 
  Country: None (occurrence: None)
  Receive Date: 20080814
  Receipt Date: 20080811
  Transmission Date: 20090109
  Serious: Yes (Hospitalization)
  Sender: FDA-Public Use
  Company Number: US-ASTRAZENECA-2008UW15820

PATIENT
  Age: 15 Year
  Sex: Female
  Weight: 53.1 kg

DRUGS (3)
  1. SEROQUEL [Suspect]
     Indication: POST-TRAUMATIC STRESS DISORDER
     Route: 048
     Dates: start: 20060101
  2. OXYCODONE HCL [Concomitant]
  3. XANAX [Concomitant]

REACTIONS (3)
  - MYDRIASIS [None]
  - RESPIRATORY ARREST [None]
  - TONSILLECTOMY [None]
